FAERS Safety Report 11157222 (Version 1)
Quarter: 2015Q2

REPORT INFORMATION
  Report Type: Spontaneous
  Country: GR (occurrence: GR)
  Receive Date: 20150602
  Receipt Date: 20150602
  Transmission Date: 20150821
  Serious: Yes (Other)
  Sender: FDA-Public Use
  Company Number: PHHY2013GR100859

PATIENT
  Age: 52 Year
  Sex: Male

DRUGS (1)
  1. GENTAMICIN. [Suspect]
     Active Substance: GENTAMICIN
     Indication: PRODUCT USED FOR UNKNOWN INDICATION
     Dosage: 0.5 ML, UNK
     Route: 057

REACTIONS (6)
  - Retinal haemorrhage [Unknown]
  - Retinal oedema [Unknown]
  - Retinal exudates [Unknown]
  - Visual acuity reduced [Unknown]
  - Visual field defect [Unknown]
  - Retinal toxicity [Unknown]
